FAERS Safety Report 7699996-4 (Version None)
Quarter: 2011Q3

REPORT INFORMATION
  Report Type: 
  Country: None (occurrence: None)
  Receive Date: 20110822
  Receipt Date: 20110408
  Transmission Date: 20111222
  Serious: No
  Sender: FDA-Public Use
  Company Number: US-BAYER-2011-030986

PATIENT
  Sex: Female

DRUGS (3)
  1. ANGELIQ [Suspect]
     Indication: VULVOVAGINAL DRYNESS
  2. ANGELIQ [Suspect]
     Indication: LOSS OF LIBIDO
  3. ANGELIQ [Suspect]
     Indication: INSOMNIA

REACTIONS (1)
  - NO ADVERSE EVENT [None]
